FAERS Safety Report 8584006-7 (Version None)
Quarter: 2012Q3

REPORT INFORMATION
  Report Type: 
  Country: None (occurrence: None)
  Receive Date: 20120810
  Receipt Date: 20120724
  Transmission Date: 20120928
  Serious: No
  Sender: FDA-Public Use
  Company Number: US-009507513-1207USA008717

PATIENT

DRUGS (3)
  1. JANUMET [Suspect]
     Indication: DIABETES MELLITUS
     Dosage: 50MG/500MG, BID
     Route: 048
     Dates: start: 20100701
  2. PRILOSEC [Concomitant]
     Dosage: 20 MG, QD
     Route: 048
     Dates: start: 20020701
  3. FENOFIBRATE [Concomitant]
     Dosage: 160 MG, QD
     Route: 048
     Dates: start: 20120301

REACTIONS (1)
  - ARTHRALGIA [None]
